FAERS Safety Report 4931707-5 (Version None)
Quarter: 2006Q1

REPORT INFORMATION
  Report Type: 
  Country: None (occurrence: None)
  Receive Date: 20060303
  Receipt Date: 20060131
  Transmission Date: 20060701
  Serious: No
  Sender: FDA-Public Use
  Company Number: US-BRISTOL-MYERS SQUIBB COMPANY-13265442

PATIENT

DRUGS (4)
  1. ERBITUX [Suspect]
     Indication: PANCREATIC CARCINOMA
     Route: 042
  2. CISPLATIN [Concomitant]
     Indication: PANCREATIC CARCINOMA
  3. GEMCITABINE [Concomitant]
     Indication: PANCREATIC CARCINOMA
  4. COREG [Concomitant]

REACTIONS (1)
  - HYPERTENSION [None]
